FAERS Safety Report 8322178-X (Version None)
Quarter: 2012Q2

REPORT INFORMATION
  Report Type: 
  Country: None (occurrence: None)
  Receive Date: 20120426
  Receipt Date: 20120417
  Transmission Date: 20120825
  Serious: Yes (Other)
  Sender: FDA-Public Use
  Company Number: ABR_00449_2012

PATIENT
  Sex: Female

DRUGS (2)
  1. BIDIL [Suspect]
     Dosage: (DF), (DF)
     Dates: start: 20120416
  2. BIDIL [Suspect]
     Dosage: (DF), (DF)
     Dates: start: 20120414, end: 20120415

REACTIONS (4)
  - DYSPNOEA [None]
  - BLOOD PRESSURE INCREASED [None]
  - PALPITATIONS [None]
  - ADVERSE DRUG REACTION [None]
